FAERS Safety Report 24086137 (Version 1)
Quarter: 2024Q3

REPORT INFORMATION
  Report Type: Spontaneous
  Country: CZ (occurrence: CZ)
  Receive Date: 20240712
  Receipt Date: 20240712
  Transmission Date: 20241016
  Serious: Yes (Other)
  Sender: MYLAN
  Company Number: None

PATIENT
  Age: 27 Year
  Sex: Male

DRUGS (9)
  1. DOXORUBICIN [Suspect]
     Active Substance: DOXORUBICIN
     Indication: Acute lymphocytic leukaemia recurrent
     Dosage: 50 MILLIGRAM/SQ. METER ON DAY 4
     Route: 065
  2. DEXAMETHASONE [Suspect]
     Active Substance: DEXAMETHASONE
     Indication: Acute lymphocytic leukaemia recurrent
     Dosage: 40 MILLIGRAM (ON DAYS 1-4 AND 11-14)
     Route: 065
  3. METHOTREXATE [Suspect]
     Active Substance: METHOTREXATE
     Indication: Acute lymphocytic leukaemia
     Dosage: UNK
     Route: 065
     Dates: start: 202003, end: 202108
  4. CYCLOPHOSPHAMIDE [Suspect]
     Active Substance: CYCLOPHOSPHAMIDE
     Indication: Acute lymphocytic leukaemia recurrent
     Dosage: 300 MILLIGRAM/SQ. METER, BID (ON DAYS 1-3)
     Route: 065
  5. VINCRISTINE [Suspect]
     Active Substance: VINCRISTINE
     Indication: Acute lymphocytic leukaemia recurrent
     Dosage: 2 MILLIGRAM, ON DAYS 4 AND 11
     Route: 065
  6. MERCAPTOPURINE [Suspect]
     Active Substance: MERCAPTOPURINE
     Indication: Acute lymphocytic leukaemia recurrent
     Dosage: UNK
     Route: 065
     Dates: start: 202003, end: 202108
  7. INOTUZUMAB OZOGAMICIN [Concomitant]
     Active Substance: INOTUZUMAB OZOGAMICIN
     Indication: Acute lymphocytic leukaemia recurrent
     Dosage: 1.5 MG/M2, CYCLIC (DIVIDED INTO 3 DOSES OF 0.5 MG/M2, APPLIED ON DAYS 1, 8 AND 15 (2ND CYCLE))
     Route: 065
  8. INOTUZUMAB OZOGAMICIN [Concomitant]
     Active Substance: INOTUZUMAB OZOGAMICIN
     Dosage: UNK UNK, CYCLE ((3RD CYCLE) )
     Route: 065
  9. INOTUZUMAB OZOGAMICIN [Concomitant]
     Active Substance: INOTUZUMAB OZOGAMICIN
     Dosage: 1.8 MG/M2, CYCLIC (IN 3 SUB-DOSES,0.8 MG/M2 ON DAY 1 AND 0.5 MG/M2 ON DAYS 8 AND 15 (1ST CYCLE))
     Route: 065
     Dates: start: 20220518

REACTIONS (1)
  - Transaminases increased [Recovered/Resolved]
